FAERS Safety Report 5912355-7 (Version None)
Quarter: 2008Q4

REPORT INFORMATION
  Report Type: 
  Country: None (occurrence: None)
  Receive Date: 20081006
  Receipt Date: 20080918
  Transmission Date: 20090506
  Serious: Yes (Disabling, Other)
  Sender: FDA-Public Use
  Company Number: ADE2008-0313

PATIENT
  Age: 38 Year
  Sex: Male
  Weight: 71 kg

DRUGS (1)
  1. FINASTERIDE [Suspect]
     Indication: ALOPECIA
     Dosage: 1MG DAILY - PO
     Route: 048
     Dates: start: 20080101, end: 20080101

REACTIONS (4)
  - BLOOD TESTOSTERONE DECREASED [None]
  - BREAST TENDERNESS [None]
  - ORGANIC ERECTILE DYSFUNCTION [None]
  - TESTICULAR PAIN [None]
